FAERS Safety Report 5377298-9 (Version None)
Quarter: 2007Q3

REPORT INFORMATION
  Report Type: 
  Country: None (occurrence: None)
  Receive Date: 20070703
  Receipt Date: 20070726
  Transmission Date: 20080115
  Serious: Yes (Other)
  Sender: FDA-Public Use
  Company Number: BR-ASTRAZENECA-2007UW14278

PATIENT
  Age: 61 Year
  Sex: Male
  Weight: 93 kg

DRUGS (3)
  1. CASODEX [Suspect]
     Route: 048
     Dates: start: 20050601, end: 20060601
  2. ZOLADEX [Suspect]
     Indication: PROSTATE CANCER
     Dosage: ONCE MONTHLY
     Route: 058
     Dates: start: 20050601
  3. HYDROCHLOROTHIAZIDE [Concomitant]
     Indication: BLOOD PRESSURE MANAGEMENT

REACTIONS (6)
  - ABDOMINAL DISTENSION [None]
  - BLOOD PRESSURE FLUCTUATION [None]
  - BREAST PAIN [None]
  - BREAST SWELLING [None]
  - HYPERHIDROSIS [None]
  - WEIGHT INCREASED [None]
